FAERS Safety Report 4376926-4 (Version None)
Quarter: 2004Q2

REPORT INFORMATION
  Report Type: 
  Country: None (occurrence: None)
  Receive Date: 20040608
  Receipt Date: 20040531
  Transmission Date: 20050107
  Serious: Yes (Other)
  Sender: FDA-Public Use
  Company Number: JP-JNJFOC-20040506900

PATIENT
  Age: 75 Year
  Sex: Female

DRUGS (7)
  1. ITRACONAZOLE [Suspect]
     Indication: CANDIDIASIS
     Dosage: 100 MG, 1 IN 1 DAY, ORAL
     Route: 048
  2. GEBEN (SULFADIAZINE SILVER) [Suspect]
     Dosage: TOPICAL
     Route: 061
  3. VANCOMYCIN HCL [Concomitant]
  4. LANSOPRAZOLE [Concomitant]
  5. MEROPEN (MEROPENEM) [Concomitant]
  6. AMIKACIN SULFATE [Concomitant]
  7. CONIEL (BENIDIPINE HYDROCHLORIDE) [Concomitant]

REACTIONS (2)
  - DRUG INTERACTION [None]
  - LEUKOPENIA [None]
